FAERS Safety Report 6139474-7 (Version None)
Quarter: 2009Q2

REPORT INFORMATION
  Report Type: 
  Country: None (occurrence: None)
  Receive Date: 20090401
  Receipt Date: 20090323
  Transmission Date: 20091009
  Serious: Yes (Other)
  Sender: FDA-Public Use
  Company Number: US-BAYER-200912658NA

PATIENT
  Age: 29 Year
  Sex: Female
  Weight: 158 kg

DRUGS (3)
  1. MIRENA [Suspect]
     Indication: CONTRACEPTION
     Dosage: CONTINUOUS
     Route: 015
     Dates: start: 20081117, end: 20090218
  2. LABETOLOL [Concomitant]
     Indication: HYPERTENSION
     Route: 048
  3. VALIUM [Concomitant]
     Indication: ANXIETY
     Route: 048
     Dates: start: 20081117, end: 20081117

REACTIONS (2)
  - IUD MIGRATION [None]
  - PELVIC PAIN [None]
